FAERS Safety Report 6380493-3 (Version None)
Quarter: 2009Q3

REPORT INFORMATION
  Report Type: 
  Country: None (occurrence: None)
  Receive Date: 20090929
  Receipt Date: 20090925
  Transmission Date: 20100115
  Serious: Yes (Death, Hospitalization)
  Sender: FDA-Public Use
  Company Number: JP-BAYER-200913161BYL

PATIENT
  Age: 63 Year
  Sex: Female
  Weight: 58 kg

DRUGS (4)
  1. NEXAVAR [Suspect]
     Indication: RENAL CELL CARCINOMA STAGE IV
     Dosage: TOTAL DAILY DOSE: 800 MG  UNIT DOSE: 200 MG
     Route: 048
     Dates: start: 20090812, end: 20090828
  2. VOLTAREN [Concomitant]
     Route: 054
     Dates: start: 20090828
  3. SOSEGON [Concomitant]
     Route: 058
     Dates: start: 20090828
  4. ATARAX [Concomitant]
     Route: 030
     Dates: start: 20090828

REACTIONS (2)
  - ACUTE RESPIRATORY FAILURE [None]
  - RENAL CELL CARCINOMA [None]
